FAERS Safety Report 13526836 (Version 1)
Quarter: 2017Q2

REPORT INFORMATION
  Report Type: Spontaneous
  Country: US (occurrence: US)
  Receive Date: 20170508
  Receipt Date: 20170508
  Transmission Date: 20170830
  Serious: No
  Sender: FDA-Public Use
  Company Number: None

PATIENT
  Age: 57 Year
  Sex: Female

DRUGS (1)
  1. HUMIRA [Suspect]
     Active Substance: ADALIMUMAB
     Route: 058
     Dates: start: 20170417, end: 20170508

REACTIONS (3)
  - Swelling face [None]
  - Pharyngeal oedema [None]
  - Swollen tongue [None]

NARRATIVE: CASE EVENT DATE: 20170501
